FAERS Safety Report 25436103 (Version 1)
Quarter: 2025Q2

REPORT INFORMATION
  Report Type: Spontaneous
  Country: US (occurrence: US)
  Receive Date: 20250614
  Receipt Date: 20250614
  Transmission Date: 20250717
  Serious: No
  Sender: MERCK SHARP & DOHME LLC
  Company Number: US-009507513-2291206

PATIENT
  Sex: Female
  Weight: 68 kg

DRUGS (26)
  1. WINREVAIR [Suspect]
     Active Substance: SOTATERCEPT-CSRK
     Indication: Product used for unknown indication
  2. WINREVAIR [Suspect]
     Active Substance: SOTATERCEPT-CSRK
  3. WINREVAIR [Suspect]
     Active Substance: SOTATERCEPT-CSRK
  4. WINREVAIR [Suspect]
     Active Substance: SOTATERCEPT-CSRK
  5. TYVASO [Suspect]
     Active Substance: TREPROSTINIL
     Indication: Pulmonary arterial hypertension
     Dosage: 72 UG, QID, STRENGTH: 0.6 MG/ML
     Route: 055
  6. TYVASO [Suspect]
     Active Substance: TREPROSTINIL
     Indication: Pulmonary arterial hypertension
     Route: 055
     Dates: start: 20240823
  7. ACETAMINOPHEN [Concomitant]
     Active Substance: ACETAMINOPHEN
  8. VITAMINS [Concomitant]
     Active Substance: VITAMINS
  9. LEFLUNOMIDE [Concomitant]
     Active Substance: LEFLUNOMIDE
  10. PREDNISONE [Concomitant]
     Active Substance: PREDNISONE
  11. ZOLOFT [Concomitant]
     Active Substance: SERTRALINE HYDROCHLORIDE
  12. LASIX [Concomitant]
     Active Substance: FUROSEMIDE
  13. SULFASALAZINE [Concomitant]
     Active Substance: SULFASALAZINE
  14. MINERALS\VITAMINS [Concomitant]
     Active Substance: MINERALS\VITAMINS
  15. ELIQUIS [Concomitant]
     Active Substance: APIXABAN
  16. TADALAFIL [Concomitant]
     Active Substance: TADALAFIL
  17. HYDROXYCHLOROQUINE SULFATE [Concomitant]
     Active Substance: HYDROXYCHLOROQUINE SULFATE
  18. TRELEGY ELLIPTA [Concomitant]
     Active Substance: FLUTICASONE FUROATE\UMECLIDINIUM BROMIDE\VILANTEROL TRIFENATATE
  19. ALBUTEROL SULFATE [Concomitant]
     Active Substance: ALBUTEROL SULFATE
  20. METOPROLOL SUCCINATE [Concomitant]
     Active Substance: METOPROLOL SUCCINATE
  21. OXYGEN [Concomitant]
     Active Substance: OXYGEN
  22. VITAMIN D3 [Concomitant]
     Active Substance: CHOLECALCIFEROL
  23. TRAZODONE HCL [Concomitant]
     Active Substance: TRAZODONE HYDROCHLORIDE
  24. BOSENTAN [Concomitant]
     Active Substance: BOSENTAN
  25. FOSAMAX [Concomitant]
     Active Substance: ALENDRONATE SODIUM
  26. TRIAMCINOLONE ACETONIDE [Concomitant]
     Active Substance: TRIAMCINOLONE ACETONIDE

REACTIONS (1)
  - Illness [Unknown]
